FAERS Safety Report 5742503-3 (Version None)
Quarter: 2008Q2

REPORT INFORMATION
  Report Type: 
  Country: None (occurrence: None)
  Receive Date: 20080519
  Receipt Date: 20080508
  Transmission Date: 20081010
  Serious: Yes (Hospitalization, Other)
  Sender: FDA-Public Use
  Company Number: US-JNJFOC-20060601973

PATIENT
  Sex: Male
  Weight: 158.76 kg

DRUGS (5)
  1. REMICADE [Suspect]
     Dosage: 24 INFUSIONS (TOTAL: 35)
     Route: 042
  2. REMICADE [Suspect]
     Dosage: 8 INFUSIONS
     Route: 042
  3. REMICADE [Suspect]
     Indication: RHEUMATOID ARTHRITIS
     Dosage: 3 INFUSIONS
     Route: 042
  4. SPORANOX [Concomitant]
  5. METHOTREXATE [Concomitant]

REACTIONS (3)
  - CENTRAL NERVOUS SYSTEM INFECTION [None]
  - COCCIDIOIDOMYCOSIS [None]
  - NON-HODGKIN'S LYMPHOMA [None]
